FAERS Safety Report 12390071 (Version 2)
Quarter: 2016Q2

REPORT INFORMATION
  Report Type: Spontaneous
  Country: US (occurrence: US)
  Receive Date: 20160520
  Receipt Date: 20160616
  Transmission Date: 20160815
  Serious: Yes (Death, Hospitalization, Other)
  Sender: FDA-Public Use
  Company Number: US-JAZZ-2016-US-008968

PATIENT
  Age: 68 Year
  Sex: Female

DRUGS (34)
  1. KEPPRA [Concomitant]
     Active Substance: LEVETIRACETAM
     Dosage: 1000 MG, BID
  2. METOPROLOL. [Concomitant]
     Active Substance: METOPROLOL
  3. VITAMIN K [Concomitant]
     Active Substance: PHYTONADIONE
  4. PRIALT [Suspect]
     Active Substance: ZICONOTIDE ACETATE
     Dosage: 0.371 ?G, QH
     Route: 037
     Dates: start: 20160128
  5. FOLIC ACID. [Concomitant]
     Active Substance: FOLIC ACID
     Dosage: 1 G, UNK
  6. OMEGA 3 [Concomitant]
     Active Substance: OMEGA-3 FATTY ACIDS
  7. SPIRONOLACTONE. [Concomitant]
     Active Substance: SPIRONOLACTONE
  8. TIZANIDINE. [Concomitant]
     Active Substance: TIZANIDINE
  9. VOLTAREN [Concomitant]
     Active Substance: DICLOFENAC SODIUM
     Dosage: 1 %, UNK
  10. BENICAR [Concomitant]
     Active Substance: OLMESARTAN MEDOXOMIL
     Dosage: 12.5 UNK, UNK
  11. DULERA [Concomitant]
     Active Substance: FORMOTEROL FUMARATE DIHYDRATE\MOMETASONE FUROATE
  12. MYRBETRIQ [Concomitant]
     Active Substance: MIRABEGRON
  13. OMEPRAZOLE. [Concomitant]
     Active Substance: OMEPRAZOLE
     Dosage: 40 MG, UNK
  14. PRAVASTATIN [Concomitant]
     Active Substance: PRAVASTATIN\PRAVASTATIN SODIUM
     Dosage: 80 MG, UNK
  15. VITAMIN D [Concomitant]
     Active Substance: CHOLECALCIFEROL
  16. CALCIUM MAGNESIUM [Concomitant]
     Active Substance: CALCIUM\MAGNESIUM
  17. CLARITIN [Concomitant]
     Active Substance: LORATADINE
     Dosage: 10 MG, UNK
  18. DHEA [Concomitant]
     Active Substance: PRASTERONE
     Dosage: 25 MG, UNK
  19. HYDROXYCHLOROQUINE SULFATE. [Concomitant]
     Active Substance: HYDROXYCHLOROQUINE SULFATE
  20. MELOXICAM. [Concomitant]
     Active Substance: MELOXICAM
     Dosage: 15 MG, UNK
  21. NORVASC [Concomitant]
     Active Substance: AMLODIPINE BESYLATE
  22. RUFINAMIDE [Concomitant]
     Active Substance: RUFINAMIDE
     Dosage: 10 MG, UNK
  23. SEROQUEL [Concomitant]
     Active Substance: QUETIAPINE FUMARATE
  24. PRIALT [Suspect]
     Active Substance: ZICONOTIDE ACETATE
     Indication: PAIN
     Dosage: UNK ?G, QH
     Route: 037
     Dates: end: 20160128
  25. ASPIRIN. [Concomitant]
     Active Substance: ASPIRIN
     Dosage: 81 MG, UNK
  26. MULTIVITAMIN [Concomitant]
     Active Substance: VITAMINS
  27. COLESTID [Concomitant]
     Active Substance: COLESTIPOL HYDROCHLORIDE
     Dosage: 1 G, BID
  28. FLOVENT [Concomitant]
     Active Substance: FLUTICASONE PROPIONATE
     Dosage: 44 ?G, UNK
     Route: 048
  29. FLONASE [Concomitant]
     Active Substance: FLUTICASONE PROPIONATE
     Dosage: 50 MG, UNK
     Route: 045
  30. LOSARTAN. [Concomitant]
     Active Substance: LOSARTAN
  31. RESTASIS [Concomitant]
     Active Substance: CYCLOSPORINE
  32. LASIX [Concomitant]
     Active Substance: FUROSEMIDE
  33. PROMETHAZINE [Concomitant]
     Active Substance: PROMETHAZINE\PROMETHAZINE HYDROCHLORIDE
  34. TEMAZEPAM STAT RX [Concomitant]

REACTIONS (19)
  - Sepsis [Fatal]
  - Rectal haemorrhage [Unknown]
  - Pulmonary mass [Unknown]
  - Coagulopathy [Unknown]
  - Acute kidney injury [Unknown]
  - Peripheral swelling [Unknown]
  - Pneumonia [Unknown]
  - Cardiac failure congestive [Unknown]
  - Asthenia [Unknown]
  - Lactic acidosis [Unknown]
  - Pain in extremity [Unknown]
  - Hypoacusis [Unknown]
  - Colitis ischaemic [Unknown]
  - Gastrointestinal haemorrhage [Unknown]
  - Liver function test abnormal [Unknown]
  - Malnutrition [Unknown]
  - Blood potassium decreased [Unknown]
  - Oral candidiasis [Unknown]
  - Visual impairment [Unknown]

NARRATIVE: CASE EVENT DATE: 201603
